FAERS Safety Report 6779301-8 (Version None)
Quarter: 2010Q2

REPORT INFORMATION
  Report Type: 
  Country: None (occurrence: None)
  Receive Date: 20100618
  Receipt Date: 20100604
  Transmission Date: 20101027
  Serious: Yes (Other)
  Sender: FDA-Public Use
  Company Number: PHHY2010GB19874

PATIENT
  Sex: Female

DRUGS (2)
  1. EXELON [Suspect]
  2. EXELON [Suspect]
     Dosage: UNK
     Route: 062

REACTIONS (2)
  - SPEECH DISORDER [None]
  - UNRESPONSIVE TO STIMULI [None]
